FAERS Safety Report 4761089-3 (Version None)
Quarter: 2005Q3

REPORT INFORMATION
  Report Type: 
  Country: None (occurrence: None)
  Receive Date: 20050901
  Receipt Date: 20050824
  Transmission Date: 20060218
  Serious: Yes (Other)
  Sender: FDA-Public Use
  Company Number: 2005120455

PATIENT
  Age: 62 Year
  Sex: Male

DRUGS (11)
  1. NEURONTIN [Suspect]
     Indication: NEUROPATHIC PAIN
     Dosage: 1200 MG (400 MG, 3 IN 1 D),
  2. OPIOIDS (OPIOIDS) [Suspect]
     Indication: ILL-DEFINED DISORDER
  3. ROFECOXIB [Concomitant]
  4. PARACETAMOL (PARACETAMOL) [Concomitant]
  5. MST CONTINUS ^ASTA MEDICA^ (MORPHINE SULFATE) [Concomitant]
  6. LEVOMEPROMAZINE (LEVOMEPROMAZINE) [Concomitant]
  7. VENLAFAXINE HCL [Concomitant]
  8. HYOSCINE HBR HYT [Concomitant]
  9. LANSOPRAZOLE [Concomitant]
  10. DOCUSATE SODIUM (DOCUSATE SODIUM) [Concomitant]
  11. MEGACE [Concomitant]

REACTIONS (3)
  - DRUG TOXICITY [None]
  - HALLUCINATION [None]
  - MYOCLONUS [None]
